FAERS Safety Report 11127288 (Version 1)
Quarter: 2015Q2

REPORT INFORMATION
  Report Type: Spontaneous
  Country: US (occurrence: None)
  Receive Date: 20150520
  Receipt Date: 20150520
  Transmission Date: 20150821
  Serious: No
  Sender: FDA-Public Use
  Company Number: None

PATIENT
  Age: 68 Year
  Sex: Female
  Weight: 57.15 kg

DRUGS (1)
  1. RISPERDAL CONSTA [Suspect]
     Active Substance: RISPERIDONE
     Indication: MENTAL DISORDER
     Dosage: BI-MONTHLY

REACTIONS (11)
  - Muscular weakness [None]
  - Alopecia [None]
  - Rash [None]
  - Incontinence [None]
  - Hormone level abnormal [None]
  - Hypertension [None]
  - Dysphagia [None]
  - Myalgia [None]
  - Constipation [None]
  - Madarosis [None]
  - Pruritus [None]

NARRATIVE: CASE EVENT DATE: 201503
